FAERS Safety Report 12936227 (Version 1)
Quarter: 2016Q4

REPORT INFORMATION
  Report Type: Spontaneous
  Country: US (occurrence: US)
  Receive Date: 20161112
  Receipt Date: 20161112
  Transmission Date: 20170207
  Serious: Yes (Hospitalization)
  Sender: FDA-Public Use
  Company Number: None

PATIENT
  Age: 57 Year
  Sex: Male
  Weight: 82.5 kg

DRUGS (1)
  1. MEMANTINE HYDROCHLORIDE. [Suspect]
     Active Substance: MEMANTINE HYDROCHLORIDE
     Dates: end: 20161013

REACTIONS (6)
  - Neoplasm malignant [None]
  - Throat cancer [None]
  - Cough [None]
  - Musculoskeletal disorder [None]
  - Dyspnoea [None]
  - Pneumothorax [None]

NARRATIVE: CASE EVENT DATE: 20161014
